FAERS Safety Report 7770399-7 (Version None)
Quarter: 2011Q3

REPORT INFORMATION
  Report Type: 
  Country: None (occurrence: None)
  Receive Date: 20110922
  Receipt Date: 20110406
  Transmission Date: 20111222
  Serious: No
  Sender: FDA-Public Use
  Company Number: US-ASTRAZENECA-2010SE09699

PATIENT
  Age: 57 Year
  Sex: Male

DRUGS (5)
  1. KLONOPIN [Concomitant]
  2. SEROQUEL XR [Suspect]
     Route: 048
  3. SEROQUEL XR [Suspect]
     Route: 048
     Dates: start: 20100101, end: 20100101
  4. PERCOCET [Concomitant]
  5. XANAX [Concomitant]

REACTIONS (10)
  - SOMNOLENCE [None]
  - MENTAL DISORDER [None]
  - DRUG DOSE OMISSION [None]
  - DELUSION [None]
  - FRUSTRATION [None]
  - OVERWEIGHT [None]
  - NERVOUSNESS [None]
  - MEMORY IMPAIRMENT [None]
  - SCHIZOPHRENIA, DISORGANISED TYPE [None]
  - FATIGUE [None]
